FAERS Safety Report 18493847 (Version 36)
Quarter: 2022Q4

REPORT INFORMATION
  Report Type: Report from Study
  Country: IE (occurrence: IE)
  Receive Date: 20201111
  Receipt Date: 20221018
  Transmission Date: 20230113
  Serious: Yes (Death, Hospitalization, Other)
  Sender: FDA-Public Use
  Company Number: IE-SHIRE-IE202019400

PATIENT
  Age: 82 Year
  Sex: Female

DRUGS (51)
  1. HUMAN IMMUNOGLOBULIN G\HYALURONIDASE RECOMBINANT HUMAN [Suspect]
     Active Substance: HUMAN IMMUNOGLOBULIN G\HYALURONIDASE RECOMBINANT HUMAN
     Indication: Immunodeficiency common variable
     Dosage: 20 GRAM, Q2WEEKS
     Route: 058
     Dates: start: 20200513
  2. HUMAN IMMUNOGLOBULIN G\HYALURONIDASE RECOMBINANT HUMAN [Suspect]
     Active Substance: HUMAN IMMUNOGLOBULIN G\HYALURONIDASE RECOMBINANT HUMAN
     Indication: Bronchiectasis
     Dosage: 50 GRAM, Q2WEEKS
     Route: 058
     Dates: start: 20200513
  3. HUMAN IMMUNOGLOBULIN G\HYALURONIDASE RECOMBINANT HUMAN [Suspect]
     Active Substance: HUMAN IMMUNOGLOBULIN G\HYALURONIDASE RECOMBINANT HUMAN
     Dosage: 50 MILLIGRAM, Q2WEEKS
     Route: 058
     Dates: start: 20200513
  4. HUMAN IMMUNOGLOBULIN G\HYALURONIDASE RECOMBINANT HUMAN [Suspect]
     Active Substance: HUMAN IMMUNOGLOBULIN G\HYALURONIDASE RECOMBINANT HUMAN
     Dosage: 50 GRAM, Q2WEEKS
     Route: 058
     Dates: start: 20200513
  5. HUMAN IMMUNOGLOBULIN G\HYALURONIDASE RECOMBINANT HUMAN [Suspect]
     Active Substance: HUMAN IMMUNOGLOBULIN G\HYALURONIDASE RECOMBINANT HUMAN
     Dosage: 50 GRAM, Q2WEEKS
     Route: 058
     Dates: start: 20200513
  6. HUMAN IMMUNOGLOBULIN G\HYALURONIDASE RECOMBINANT HUMAN [Suspect]
     Active Substance: HUMAN IMMUNOGLOBULIN G\HYALURONIDASE RECOMBINANT HUMAN
     Dosage: 30 MILLIGRAM, Q2WEEKS
     Route: 058
     Dates: start: 20200610
  7. HUMAN IMMUNOGLOBULIN G\HYALURONIDASE RECOMBINANT HUMAN [Suspect]
     Active Substance: HUMAN IMMUNOGLOBULIN G\HYALURONIDASE RECOMBINANT HUMAN
     Dosage: 30 GRAM, Q2WEEKS
     Route: 058
     Dates: start: 20200707
  8. HUMAN IMMUNOGLOBULIN G\HYALURONIDASE RECOMBINANT HUMAN [Suspect]
     Active Substance: HUMAN IMMUNOGLOBULIN G\HYALURONIDASE RECOMBINANT HUMAN
     Dosage: 20 GRAM, Q2WEEKS
     Route: 058
     Dates: start: 20200707
  9. HUMAN IMMUNOGLOBULIN G\HYALURONIDASE RECOMBINANT HUMAN [Suspect]
     Active Substance: HUMAN IMMUNOGLOBULIN G\HYALURONIDASE RECOMBINANT HUMAN
     Dosage: 30 GRAM, Q2WEEKS
     Route: 058
     Dates: start: 20200721
  10. HUMAN IMMUNOGLOBULIN G\HYALURONIDASE RECOMBINANT HUMAN [Suspect]
     Active Substance: HUMAN IMMUNOGLOBULIN G\HYALURONIDASE RECOMBINANT HUMAN
     Dosage: 20 MILLIGRAM, Q2WEEKS
     Route: 058
     Dates: start: 20200721
  11. ALBUTEROL [Concomitant]
     Active Substance: ALBUTEROL
     Dosage: 2.5 MILLILITER, QID
     Route: 050
  12. CITALOPRAM [Concomitant]
     Active Substance: CITALOPRAM HYDROBROMIDE
     Dosage: 20 MILLIGRAM, QD
     Route: 048
  13. FOSAVANCE [Concomitant]
     Active Substance: ALENDRONATE SODIUM\CHOLECALCIFEROL
     Dosage: 5600 INTERNATIONAL UNIT, 1/WEEK
     Route: 048
  14. VALTREX [Concomitant]
     Active Substance: VALACYCLOVIR HYDROCHLORIDE
     Dosage: 500 MILLIGRAM, BID
     Route: 048
  15. CALCIUM\CHOLECALCIFEROL [Concomitant]
     Active Substance: CALCIUM\CHOLECALCIFEROL
     Dosage: UNK, BID
     Route: 065
  16. CALCIUM\CHOLECALCIFEROL [Concomitant]
     Active Substance: CALCIUM\CHOLECALCIFEROL
     Dosage: 500 INTERNATIONAL UNIT, QD
     Route: 048
  17. CARBOCYSTEINE [Concomitant]
     Active Substance: CARBOCYSTEINE
     Dosage: 10 MILLILITER, TID
     Route: 048
  18. NEXIUM I.V. [Concomitant]
     Active Substance: ESOMEPRAZOLE SODIUM
     Dosage: 40 MILLIGRAM, QD
     Route: 050
  19. BISOPROLOL [Concomitant]
     Active Substance: BISOPROLOL
     Dosage: 7.5 MILLIGRAM, QD
     Route: 065
  20. ESOMEPRAZOLE [Concomitant]
     Active Substance: ESOMEPRAZOLE
     Dosage: 40 MILLIGRAM, QD
     Route: 065
  21. APIXABAN [Concomitant]
     Active Substance: APIXABAN
     Dosage: 2.5 MILLIGRAM, BID
     Route: 065
  22. ATORVASTATIN [Concomitant]
     Active Substance: ATORVASTATIN
     Dosage: 80 MILLIGRAM, QD
     Route: 065
  23. SODIUM CHLORIDE [Concomitant]
     Active Substance: SODIUM CHLORIDE
     Dosage: UNK, QID
     Route: 065
  24. GLYCOPYRRONIUM\INDACATEROL [Concomitant]
     Active Substance: GLYCOPYRRONIUM\INDACATEROL
     Dosage: UNK
     Route: 065
  25. SULFAMETHOXAZOLE\TRIMETHOPRIM [Concomitant]
     Active Substance: SULFAMETHOXAZOLE\TRIMETHOPRIM
     Dosage: 160 MILLIGRAM, QD
     Route: 050
  26. VALACYCLOVIR HYDROCHLORIDE [Concomitant]
     Active Substance: VALACYCLOVIR HYDROCHLORIDE
     Dosage: 500 MILLIGRAM, BID
     Route: 065
  27. AZOPT [Concomitant]
     Active Substance: BRINZOLAMIDE
     Dosage: UNK
     Route: 065
  28. ACETAMINOPHEN [Concomitant]
     Active Substance: ACETAMINOPHEN
     Dosage: 1 GRAM
     Route: 065
  29. DIGOXIN [Concomitant]
     Active Substance: DIGOXIN
     Dosage: 125 MICROGRAM, QD
     Route: 065
  30. CLOPIDOGREL [Concomitant]
     Active Substance: CLOPIDOGREL BISULFATE
     Dosage: 75 MILLIGRAM, QD
     Route: 065
  31. FOLIC ACID [Concomitant]
     Active Substance: FOLIC ACID
     Dosage: 5 MILLIGRAM, QD
     Route: 050
  32. FUROSEMIDE [Concomitant]
     Active Substance: FUROSEMIDE
     Dosage: 40 MILLIGRAM, QD
     Route: 065
  33. VENTOLIN [Concomitant]
     Active Substance: ALBUTEROL SULFATE
     Dosage: 2.5 MILLIGRAM, QID
     Route: 065
  34. COLOMYCIN [COLISTIMETHATE SODIUM;SODIUM CHLORIDE] [Concomitant]
     Dosage: 2 INTERNATIONAL UNIT, BID
     Route: 065
  35. DELTACORTRIL [PREDNISOLONE ACETATE] [Concomitant]
     Dosage: 5 MILLIGRAM, QD
     Route: 065
  36. OXYGEN [Concomitant]
     Active Substance: OXYGEN
     Dosage: UNK
     Route: 065
  37. XALATAN [Concomitant]
     Active Substance: LATANOPROST
     Dosage: UNK, QD
     Route: 065
  38. ATROVENT [Concomitant]
     Active Substance: IPRATROPIUM BROMIDE
     Dosage: 250 MICROGRAM
     Route: 065
  39. LANOXIN [Concomitant]
     Active Substance: DIGOXIN
     Dosage: 62.5 MICROGRAM, BID
     Route: 050
  40. DOXYCYCLINE [Concomitant]
     Active Substance: DOXYCYCLINE
     Indication: Lower respiratory tract infection
     Dosage: 500 MILLIGRAM, BID
     Route: 050
  41. DOXYCYCLINE [Concomitant]
     Active Substance: DOXYCYCLINE
     Dosage: 100 MILLIGRAM, BID
     Dates: start: 20211108
  42. HYDROCORTISONE [Concomitant]
     Active Substance: HYDROCORTISONE
     Indication: Lower respiratory tract infection
     Dosage: 10 MILLIGRAM, QD
     Route: 050
  43. CIPRO BASE [Concomitant]
     Dosage: 500 MILLIGRAM, BID
     Route: 050
  44. AZITHROMYCIN [Concomitant]
     Active Substance: AZITHROMYCIN
     Dosage: 250 MILLIGRAM, QOD
     Route: 050
  45. ELIQUIS [Concomitant]
     Active Substance: APIXABAN
     Dosage: 2.5 MILLIGRAM, BD
     Route: 050
  46. PREDNISOLONE [Concomitant]
     Active Substance: PREDNISOLONE
     Dosage: 30 MILLIGRAM
     Route: 050
  47. AMOXICILLIN SODIUM [Concomitant]
     Active Substance: AMOXICILLIN SODIUM
     Dosage: 250 MILLIGRAM
     Route: 050
  48. TERIPARATIDE [Concomitant]
     Active Substance: TERIPARATIDE
     Indication: Immunodeficiency common variable
     Dosage: 20 MICROGRAM
     Route: 058
     Dates: start: 20210303
  49. TERIPARATIDE [Concomitant]
     Active Substance: TERIPARATIDE
     Dosage: 1 MILLIGRAM
     Route: 050
  50. ORAMORPH SR SUSTAINED RELEASE [Concomitant]
     Active Substance: MORPHINE SULFATE
     Dosage: 2 MILLIGRAM, QD
     Route: 065
  51. IRON [Concomitant]
     Active Substance: IRON
     Dosage: UNK
     Route: 050

REACTIONS (29)
  - COVID-19 [Fatal]
  - Tracheal disorder [Unknown]
  - Limb injury [Unknown]
  - Fall [Unknown]
  - Haemorrhage [Recovering/Resolving]
  - Lower respiratory tract infection [Not Recovered/Not Resolved]
  - Poor venous access [Unknown]
  - Condition aggravated [Recovered/Resolved]
  - Skin laceration [Recovering/Resolving]
  - Irritable bowel syndrome [Not Recovered/Not Resolved]
  - Weight decreased [Not Recovered/Not Resolved]
  - Joint injury [Recovering/Resolving]
  - Respiratory tract infection [Recovering/Resolving]
  - Sunburn [Not Recovered/Not Resolved]
  - Decreased appetite [Not Recovered/Not Resolved]
  - Dyspnoea [Not Recovered/Not Resolved]
  - Infusion site bruising [Recovered/Resolved]
  - Diarrhoea [Recovered/Resolved]
  - Infusion site swelling [Recovering/Resolving]
  - Malaise [Recovering/Resolving]
  - Hyperhidrosis [Recovered/Resolved]
  - Dizziness [Recovering/Resolving]
  - Infusion site erythema [Recovering/Resolving]
  - Fatigue [Not Recovered/Not Resolved]
  - Nausea [Recovered/Resolved]
  - Device alarm issue [Recovered/Resolved]
  - Device infusion issue [Recovered/Resolved]
  - Product use in unapproved indication [Unknown]
  - Inappropriate schedule of product administration [Recovering/Resolving]

NARRATIVE: CASE EVENT DATE: 20200610
